FAERS Safety Report 18693475 (Version 2)
Quarter: 2021Q1

REPORT INFORMATION
  Report Type: Spontaneous
  Country: US (occurrence: US)
  Receive Date: 20210104
  Receipt Date: 20210208
  Transmission Date: 20210419
  Serious: Yes (Hospitalization, Other)
  Sender: FDA-Public Use
  Company Number: US-DRREDDYS-USA/USA/21/0130721

PATIENT
  Age: 45 Year
  Sex: Male

DRUGS (2)
  1. RANITIDINE. [Suspect]
     Active Substance: RANITIDINE
     Indication: GASTROENTERITIS EOSINOPHILIC
  2. SUCRALFATE. [Suspect]
     Active Substance: SUCRALFATE
     Indication: GASTROENTERITIS EOSINOPHILIC

REACTIONS (1)
  - Treatment failure [Unknown]
